FAERS Safety Report 9197881 (Version 1)
Quarter: 2013Q1

REPORT INFORMATION
  Report Type: Spontaneous
  Country: US (occurrence: US)
  Receive Date: 20130328
  Receipt Date: 20130328
  Transmission Date: 20140127
  Serious: Yes (Hospitalization)
  Sender: FDA-Public Use
  Company Number: US-COVIDIEN/TYCO HEALTHCARE/MALLINCKRODT-T201301363

PATIENT
  Age: 34 Month
  Sex: Female

DRUGS (2)
  1. METHADONE [Suspect]
     Indication: ACCIDENTAL EXPOSURE TO PRODUCT
     Dosage: UNK
  2. SOMATROPIN [Concomitant]
     Indication: BODY HEIGHT BELOW NORMAL
     Dosage: UNK, QD
     Route: 058

REACTIONS (2)
  - Accidental exposure to product [Recovered/Resolved]
  - Toxicity to various agents [Recovered/Resolved]
